FAERS Safety Report 18194220 (Version 2)
Quarter: 2020Q3

REPORT INFORMATION
  Report Type: Spontaneous
  Country: US (occurrence: US)
  Receive Date: 20200825
  Receipt Date: 20200831
  Transmission Date: 20201103
  Serious: Yes (Other)
  Sender: FDA-Public Use
  Company Number: US-TEVA-2020-US-1818290

PATIENT
  Age: 79 Year
  Sex: Male

DRUGS (2)
  1. PREDNISONE. [Suspect]
     Active Substance: PREDNISONE
     Indication: ACQUIRED EPIDERMOLYSIS BULLOSA
     Dosage: 40 MILLIGRAM DAILY;
     Route: 048
  2. PREDNISONE. [Suspect]
     Active Substance: PREDNISONE
     Indication: ACQUIRED EPIDERMOLYSIS BULLOSA
     Dosage: 80 MILLIGRAM DAILY; FOR FIVE DAYS
     Route: 042

REACTIONS (2)
  - Staphylococcal infection [Recovered/Resolved]
  - Subcutaneous abscess [Recovered/Resolved]
